FAERS Safety Report 6250122-8 (Version None)
Quarter: 2009Q2

REPORT INFORMATION
  Report Type: 
  Country: None (occurrence: None)
  Receive Date: 20090626
  Receipt Date: 20090611
  Transmission Date: 20091009
  Serious: Yes (Other)
  Sender: FDA-Public Use
  Company Number: 2009S1000034

PATIENT
  Sex: Male

DRUGS (1)
  1. INOMAX [Suspect]
     Dosage: 20 PPM; CONT; INH
     Route: 055

REACTIONS (2)
  - DEVICE FAILURE [None]
  - OXYGEN SATURATION DECREASED [None]
